FAERS Safety Report 8341393-2 (Version None)
Quarter: 2012Q2

REPORT INFORMATION
  Report Type: 
  Country: None (occurrence: None)
  Receive Date: 20120507
  Receipt Date: 20120502
  Transmission Date: 20120825
  Serious: Yes (Hospitalization)
  Sender: FDA-Public Use
  Company Number: GB-PFIZER INC-2012107315

PATIENT
  Age: 60 Year
  Sex: Female
  Weight: 45 kg

DRUGS (3)
  1. ARTHROTEC [Suspect]
     Indication: RHEUMATOID ARTHRITIS
     Dosage: 1 DF, 2X/DAY
     Route: 048
     Dates: end: 20120422
  2. TRAMADOL [Concomitant]
  3. ACETAMINOPHEN AND CODEINE PHOSPHATE [Concomitant]

REACTIONS (7)
  - HAEMATEMESIS [None]
  - HAEMOGLOBIN DECREASED [None]
  - THROMBOSIS [None]
  - ABDOMINAL PAIN [None]
  - HAEMATOCHEZIA [None]
  - DUODENAL ULCER HAEMORRHAGE [None]
  - DIARRHOEA [None]
